FAERS Safety Report 6727373-9 (Version None)
Quarter: 2010Q2

REPORT INFORMATION
  Report Type: 
  Country: None (occurrence: None)
  Receive Date: 20100517
  Receipt Date: 20100511
  Transmission Date: 20101027
  Serious: Yes (Life-Threatening, Hospitalization)
  Sender: FDA-Public Use
  Company Number: PHHY2010FI30149

PATIENT
  Sex: Female

DRUGS (8)
  1. LESCOL [Suspect]
     Indication: HYPERCHOLESTEROLAEMIA
     Dosage: 1 TABLET PER DAY
     Route: 048
     Dates: start: 20090101, end: 20100321
  2. FURESIS [Concomitant]
     Indication: CARDIAC FAILURE
     Dosage: 40 MG (2 TABLETS PER DAY)
     Route: 048
  3. THYROXIN [Concomitant]
     Indication: HYPOTHYROIDISM
     Dosage: 0.1 MG (ONE TABLET) PERD AY
     Route: 048
  4. METOPROLOL TARTRATE [Concomitant]
     Dosage: 50 MG (1 TABLET) PER DAY
     Route: 048
  5. PRIMASPAN [Concomitant]
     Indication: ATRIAL FIBRILLATION
     Dosage: 100 MG (1 TABLET) PER DAY
     Route: 048
  6. IMOVANE [Concomitant]
     Dosage: 7.5 MG (DOSE OF HALF TO ONE TABLET) PER DAY
     Route: 048
  7. FLIXOTIDE EVOHALER [Concomitant]
     Indication: ASTHMA
     Dosage: 250 UG WITH DOSE OF 4 INHALATIONS PER DAY
     Dates: start: 20100305
  8. VENTOLIN [Concomitant]
     Indication: ASTHMA
     Dosage: 0.1 MG INHALATION
     Dates: start: 20100305

REACTIONS (6)
  - BEDRIDDEN [None]
  - EJECTION FRACTION ABNORMAL [None]
  - METABOLIC ACIDOSIS [None]
  - MUSCULAR WEAKNESS [None]
  - RHABDOMYOLYSIS [None]
  - URINE OUTPUT DECREASED [None]
